FAERS Safety Report 19027500 (Version 1)
Quarter: 2021Q1

REPORT INFORMATION
  Report Type: Spontaneous
  Country: GB (occurrence: GB)
  Receive Date: 20210319
  Receipt Date: 20210319
  Transmission Date: 20210420
  Serious: No
  Sender: FDA-Public Use
  Company Number: GB-MARKSANS PHARMA LIMITED-2108182

PATIENT

DRUGS (1)
  1. IBUPROFEN MOELCULE FROM UK MARKET [Suspect]
     Active Substance: IBUPROFEN
     Route: 048

REACTIONS (3)
  - Dyspnoea [None]
  - Oropharyngeal pain [None]
  - Throat irritation [None]
